FAERS Safety Report 24904600 (Version 1)
Quarter: 2025Q1

REPORT INFORMATION
  Report Type: Spontaneous
  Country: US (occurrence: US)
  Receive Date: 20250130
  Receipt Date: 20250130
  Transmission Date: 20250408
  Serious: No
  Sender: Tarsus Pharmaceuticals
  Company Number: US-TARSUS PHARMACEUTICALS-TSP-US-2024-000527

PATIENT
  Age: 77 Year
  Sex: Female
  Weight: 81.633 kg

DRUGS (2)
  1. XDEMVY [Suspect]
     Active Substance: LOTILANER
     Indication: Arthropod infestation
     Dosage: 1 DROP, BID IN EACH EYE
     Route: 047
     Dates: start: 20241012
  2. LIPITOR [Concomitant]
     Active Substance: ATORVASTATIN CALCIUM
     Indication: Product used for unknown indication
     Route: 065

REACTIONS (2)
  - Eyelids pruritus [Not Recovered/Not Resolved]
  - Product colour issue [Unknown]

NARRATIVE: CASE EVENT DATE: 20241001
